FAERS Safety Report 6852937-1 (Version None)
Quarter: 2010Q3

REPORT INFORMATION
  Report Type: 
  Country: None (occurrence: None)
  Receive Date: 20100717
  Receipt Date: 20071126
  Transmission Date: 20110219
  Serious: No
  Sender: FDA-Public Use
  Company Number: US-PFIZER INC-2007101241

PATIENT
  Sex: Female
  Weight: 62.7 kg

DRUGS (9)
  1. CHANTIX [Suspect]
     Indication: SMOKING CESSATION THERAPY
     Dates: start: 20071123
  2. SERETIDE MITE [Concomitant]
  3. ALBUTEROL [Concomitant]
  4. TIOTROPIUM BROMIDE [Concomitant]
  5. PLAVIX [Concomitant]
  6. TOPROL-XL [Concomitant]
  7. DYAZIDE [Concomitant]
  8. ACETYLSALICYLIC ACID [Concomitant]
  9. VYTORIN [Concomitant]

REACTIONS (2)
  - GLYCOSYLATED HAEMOGLOBIN INCREASED [None]
  - NAUSEA [None]
